FAERS Safety Report 8112200-8 (Version None)
Quarter: 2012Q1

REPORT INFORMATION
  Report Type: 
  Country: None (occurrence: None)
  Receive Date: 20120203
  Receipt Date: 20120130
  Transmission Date: 20120608
  Serious: No
  Sender: FDA-Public Use
  Company Number: GB-ABBOTT-12P-167-0895312-00

PATIENT
  Sex: Female

DRUGS (3)
  1. HUMIRA [Suspect]
     Dosage: INDUCTION DOSE
  2. HUMIRA [Suspect]
  3. HUMIRA [Suspect]
     Indication: CROHN'S DISEASE
     Route: 058
     Dates: start: 20120102

REACTIONS (3)
  - NAUSEA [None]
  - GASTRIC DILATATION [None]
  - ABDOMINAL DISTENSION [None]
